FAERS Safety Report 18761679 (Version 1)
Quarter: 2021Q1

REPORT INFORMATION
  Report Type: Report from Study
  Country: NO (occurrence: NO)
  Receive Date: 20210120
  Receipt Date: 20210120
  Transmission Date: 20210419
  Serious: Yes (Hospitalization)
  Sender: FDA-Public Use
  Company Number: NO-ROCHE-2748708

PATIENT
  Age: 26 Year
  Sex: Female
  Weight: 47 kg

DRUGS (11)
  1. PROVERA [Concomitant]
     Active Substance: MEDROXYPROGESTERONE ACETATE
     Dosage: HORMONE SUPPLEMENT
     Route: 048
     Dates: start: 20200515
  2. ESTRADOT [Concomitant]
     Active Substance: ESTRADIOL
     Dosage: HORMONOE SUPPLEMENT?SKIN PLASTER
     Dates: start: 20200515
  3. BEVACIZUMAB. [Suspect]
     Active Substance: BEVACIZUMAB
     Indication: CERVIX CARCINOMA
     Dosage: DATE OF MOST RECENT DOSE OF BEVACIZUMAB PRIOR TO ADVERSE EVENT ONSET: 25/NOV/2020
     Route: 042
     Dates: start: 20201125
  4. FAMOTIDIN [Concomitant]
     Active Substance: FAMOTIDINE
     Dosage: ANTACID
     Route: 048
     Dates: start: 20201125, end: 20201125
  5. PACLITAXEL. [Suspect]
     Active Substance: PACLITAXEL
     Indication: CERVIX CARCINOMA
     Dosage: DATE OF MOST RECENT DOSE OF PACLITAXEL PRIOR TO EVENT ONSET: 25/NOV/2020
     Route: 042
     Dates: start: 20201125
  6. CARBOPLATIN. [Suspect]
     Active Substance: CARBOPLATIN
     Indication: CERVIX CARCINOMA
     Dosage: AUC 5?DATE OF MOST RECENT DOSE OF CARBOPLATIN PRIOR TO EVENT ONSET: 650 MG
     Route: 042
     Dates: start: 20201125
  7. AKYNZEO [Concomitant]
     Active Substance: NETUPITANT\PALONOSETRON HYDROCHLORIDE
     Dosage: 300 MG/0.5 MG?ANTIEMETIC
     Route: 048
     Dates: start: 20201125, end: 20201125
  8. DEXAMETHASONE. [Concomitant]
     Active Substance: DEXAMETHASONE
     Dosage: STEROID
     Route: 048
     Dates: start: 20201126, end: 20201127
  9. DEXAMETHASONE. [Concomitant]
     Active Substance: DEXAMETHASONE
     Route: 042
     Dates: start: 20201125, end: 20201125
  10. ATEZOLIZUMAB. [Suspect]
     Active Substance: ATEZOLIZUMAB
     Indication: CERVIX CARCINOMA
     Dosage: DATE OF MOST RECENT DOSE OF ATEZOLIZUMAB PRIOR TO EVENT ONSET: 25/NOV/2020
     Route: 042
     Dates: start: 20201125
  11. DEXCHLORPHENIRAMINE [Concomitant]
     Active Substance: DEXCHLORPHENIRAMINE
     Indication: DRUG HYPERSENSITIVITY
     Route: 042
     Dates: start: 20201125, end: 20201125

REACTIONS (2)
  - Urinary bladder haemorrhage [Recovered/Resolved]
  - Urinary retention [Recovered/Resolved]

NARRATIVE: CASE EVENT DATE: 20201209
